FAERS Safety Report 4590222-1 (Version None)
Quarter: 2005Q1

REPORT INFORMATION
  Report Type: 
  Country: None (occurrence: None)
  Receive Date: 20050217
  Receipt Date: 20050204
  Transmission Date: 20050727
  Serious: Yes (Hospitalization)
  Sender: FDA-Public Use
  Company Number: HQWYE144307FEB05

PATIENT
  Age: 52 Year
  Sex: Male
  Weight: 104.42 kg

DRUGS (7)
  1. PHENERGAN [Suspect]
     Indication: NAUSEA
     Dosage: 200 MG BIMONTHLY (3-4 DAYS EACH TIME), RECTAL
     Route: 054
     Dates: start: 19990101, end: 20040801
  2. MORPHINE SULFATE [Suspect]
     Dates: start: 20040826, end: 20040826
  3. PROMETHAZINE [Suspect]
     Dosage: 1 DOSE 1X PER 1 TOT
     Dates: start: 20040826, end: 20040826
  4. PREVACID [Concomitant]
  5. ULTRAM (TRAMADOL HYDROCHLORIDE0 [Concomitant]
  6. CARAFATE [Concomitant]
  7. LEVSIN (HYOSCYAMINE SULFATE) [Concomitant]

REACTIONS (11)
  - CHEST PAIN [None]
  - DRUG INTERACTION [None]
  - DRUG INTOLERANCE [None]
  - DYSKINESIA [None]
  - FEELING ABNORMAL [None]
  - HEART RATE INCREASED [None]
  - NAUSEA [None]
  - OESOPHAGEAL SPASM [None]
  - PARALYSIS [None]
  - SENSATION OF HEAVINESS [None]
  - THROAT IRRITATION [None]
